FAERS Safety Report 8006146-3 (Version None)
Quarter: 2011Q4

REPORT INFORMATION
  Report Type: 
  Country: None (occurrence: None)
  Receive Date: 20111226
  Receipt Date: 20111213
  Transmission Date: 20120403
  Serious: Yes (Other)
  Sender: FDA-Public Use
  Company Number: US-ELI_LILLY_AND_COMPANY-US201112004001

PATIENT
  Sex: Female

DRUGS (2)
  1. ZYPREXA [Suspect]
     Indication: SLEEP DISORDER
     Dosage: 5 MG, QD
     Dates: end: 20111201
  2. ZYPREXA [Suspect]
     Dosage: 5 MG, QD
     Dates: start: 20111201

REACTIONS (10)
  - LACERATION [None]
  - DEPRESSED MOOD [None]
  - FALL [None]
  - CRYING [None]
  - PAIN [None]
  - OFF LABEL USE [None]
  - MEMORY IMPAIRMENT [None]
  - SOMNOLENCE [None]
  - DYSPNOEA [None]
  - CONTUSION [None]
